FAERS Safety Report 20967654 (Version 1)
Quarter: 2022Q2

REPORT INFORMATION
  Report Type: Spontaneous
  Country: US (occurrence: None)
  Receive Date: 20220616
  Receipt Date: 20220616
  Transmission Date: 20220721
  Serious: Yes (Death)
  Sender: FDA-Public Use
  Company Number: None

PATIENT
  Sex: Female

DRUGS (8)
  1. BOTOX [Suspect]
     Active Substance: ONABOTULINUMTOXINA
     Indication: Muscle spasms
     Dosage: OTHER FREQUENCY : EVERY 90 DAYS;?
     Route: 030
     Dates: start: 20201209, end: 202206
  2. AVONEX [Concomitant]
     Active Substance: INTERFERON BETA-1A
  3. BACLOFEN [Concomitant]
     Active Substance: BACLOFEN
  4. FOSAMAX + D [Concomitant]
  5. RECLAST [Concomitant]
     Active Substance: ZOLEDRONIC ACID
  6. SIMVASTATIN [Concomitant]
     Active Substance: SIMVASTATIN
  7. TRAZODONE [Concomitant]
     Active Substance: TRAZODONE HYDROCHLORIDE
  8. VESICARE [Concomitant]
     Active Substance: SOLIFENACIN SUCCINATE

REACTIONS (1)
  - Death [None]
